FAERS Safety Report 6355970-1 (Version None)
Quarter: 2009Q3

REPORT INFORMATION
  Report Type: 
  Country: None (occurrence: None)
  Receive Date: 20090915
  Receipt Date: 20090911
  Transmission Date: 20100115
  Serious: Yes (Other)
  Sender: FDA-Public Use
  Company Number: AU-ROCHE-655916

PATIENT
  Age: 56 Year
  Sex: Female

DRUGS (5)
  1. CEFTRIAXONE SODIUM [Suspect]
     Indication: DRUG USE FOR UNKNOWN INDICATION
     Route: 042
     Dates: start: 20081108, end: 20081110
  2. GENTAMICIN SULFATE [Concomitant]
  3. METRONIDAZOLE [Concomitant]
  4. PARACETAMOL [Concomitant]
  5. XALACOM [Concomitant]

REACTIONS (2)
  - PERIORBITAL OEDEMA [None]
  - RASH ERYTHEMATOUS [None]
